FAERS Safety Report 9153677 (Version 1)
Quarter: 2013Q1

REPORT INFORMATION
  Report Type: Spontaneous
  Country: US (occurrence: None)
  Receive Date: 20130306
  Receipt Date: 20130306
  Transmission Date: 20140127
  Serious: Yes (Other)
  Sender: FDA-Public Use
  Company Number: None

PATIENT
  Age: 58 Year
  Sex: Male
  Weight: 154.5 kg

DRUGS (2)
  1. SIMVASTATIN [Suspect]
     Indication: CARDIAC FAILURE CONGESTIVE
     Dosage: DAILY MOUTH
     Route: 048
     Dates: start: 2009
  2. PRAVASTATIN [Suspect]

REACTIONS (3)
  - Amnesia [None]
  - Confusional state [None]
  - Impaired driving ability [None]
